FAERS Safety Report 5935050-7 (Version None)
Quarter: 2008Q4

REPORT INFORMATION
  Report Type: 
  Country: None (occurrence: None)
  Receive Date: 20081030
  Receipt Date: 20081022
  Transmission Date: 20090506
  Serious: Yes (Hospitalization)
  Sender: FDA-Public Use
  Company Number: US-BAYER-200836624NA

PATIENT
  Age: 35 Year
  Sex: Female

DRUGS (5)
  1. YAZ [Suspect]
     Indication: CONTRACEPTION
     Route: 048
     Dates: start: 20080701, end: 20080901
  2. SYNTHROID [Concomitant]
     Route: 048
  3. ZYRTEC [Concomitant]
  4. ALLERY INJECTION [Concomitant]
  5. NASONEX [Concomitant]

REACTIONS (1)
  - PULMONARY EMBOLISM [None]
